FAERS Safety Report 5952615-7 (Version None)
Quarter: 2008Q4

REPORT INFORMATION
  Report Type: 
  Country: None (occurrence: None)
  Receive Date: 20081031
  Receipt Date: 20071107
  Transmission Date: 20090506
  Serious: Yes (Other)
  Sender: FDA-Public Use
  Company Number: US-WYE-H01201807

PATIENT
  Age: 71 Year
  Sex: Female
  Weight: 68.1 kg

DRUGS (1)
  1. PREMARIN [Suspect]
     Indication: MENOPAUSAL SYMPTOMS
     Dosage: 1 APPLICATOR 1X PER 1 DAY, VAGINAL
     Route: 067
     Dates: start: 20060101, end: 20071010

REACTIONS (5)
  - APPLICATION SITE BLEEDING [None]
  - APPLICATION SITE IRRITATION [None]
  - DRUG EFFECT DECREASED [None]
  - METRORRHAGIA [None]
  - VULVOVAGINAL DISCOMFORT [None]
